FAERS Safety Report 4849176-2 (Version None)
Quarter: 2005Q4

REPORT INFORMATION
  Report Type: 
  Country: None (occurrence: None)
  Receive Date: 20051209
  Receipt Date: 20051201
  Transmission Date: 20060501
  Serious: Yes (Death, Hospitalization)
  Sender: FDA-Public Use
  Company Number: US-MERCK-0512USA00544

PATIENT
  Age: 63 Year
  Sex: Female

DRUGS (13)
  1. VIOXX [Suspect]
     Indication: ARTHRITIS
     Route: 048
     Dates: start: 20000601, end: 20031001
  2. OPTIVAR OPHTHALMIC SOLUTION [Concomitant]
     Route: 065
  3. HUMALOG [Concomitant]
     Route: 065
  4. ENALAPRIL MALEATE [Concomitant]
     Route: 065
  5. DEXTROSE [Concomitant]
     Route: 065
  6. ATENOLOL [Concomitant]
     Route: 065
  7. LIPITOR [Concomitant]
     Route: 065
  8. FUROSEMIDE [Concomitant]
     Route: 065
  9. GLUCOVANCE [Concomitant]
     Route: 065
  10. LANTUS [Concomitant]
     Route: 065
  11. HYDROXYCHLOROQUINE SULFATE [Concomitant]
     Route: 065
  12. XALATAN [Concomitant]
     Route: 065
  13. ALPHAGAN [Concomitant]
     Route: 065

REACTIONS (16)
  - ANOXIC ENCEPHALOPATHY [None]
  - BACTERIAL INFECTION [None]
  - CARDIAC FAILURE CONGESTIVE [None]
  - DEATH [None]
  - DECUBITUS ULCER [None]
  - ELECTROMECHANICAL DISSOCIATION [None]
  - GALLBLADDER DISORDER [None]
  - HEPATOMEGALY [None]
  - HYPONATRAEMIA [None]
  - INFECTION [None]
  - INTRACRANIAL INJURY [None]
  - LACUNAR INFARCTION [None]
  - MORGANELLA INFECTION [None]
  - MYOCARDIAL INFARCTION [None]
  - RESPIRATORY FAILURE [None]
  - STAPHYLOCOCCAL INFECTION [None]
